FAERS Safety Report 25701687 (Version 1)
Quarter: 2025Q3

REPORT INFORMATION
  Report Type: Spontaneous
  Country: US (occurrence: US)
  Receive Date: 20250819
  Receipt Date: 20250819
  Transmission Date: 20251020
  Serious: Yes (Other)
  Sender: AMGEN
  Company Number: US-AMGEN-USASP2025159230

PATIENT
  Sex: Male

DRUGS (3)
  1. KRYSTEXXA [Suspect]
     Active Substance: PEGLOTICASE
     Indication: Gout
     Route: 040
     Dates: start: 20250710
  2. KRYSTEXXA [Suspect]
     Active Substance: PEGLOTICASE
     Route: 040
     Dates: start: 20250807, end: 20250807
  3. METHOTREXATE [Suspect]
     Active Substance: METHOTREXATE
     Indication: Product used for unknown indication
     Route: 065

REACTIONS (3)
  - Adverse reaction [Unknown]
  - Blood uric acid increased [Unknown]
  - Off label use [Unknown]

NARRATIVE: CASE EVENT DATE: 20250101
